FAERS Safety Report 11836746 (Version 1)
Quarter: 2015Q4

REPORT INFORMATION
  Report Type: Spontaneous
  Country: IR (occurrence: IR)
  Receive Date: 20151215
  Receipt Date: 20151215
  Transmission Date: 20160305
  Serious: Yes (Life-Threatening)
  Sender: FDA-Public Use
  Company Number: IR-ROXANE LABORATORIES, INC.-2015-RO-02080RO

PATIENT
  Age: 21 Month
  Sex: Female

DRUGS (3)
  1. CALCIUM GLUCONATE. [Suspect]
     Active Substance: CALCIUM GLUCONATE
     Indication: HYPOCALCAEMIA
     Dosage: 540 MG
     Route: 042
  2. CALCIUM CARBONATE ORAL SUSPENSION 1250 MG/5 ML [Suspect]
     Active Substance: CALCIUM CARBONATE
     Indication: HYPOCALCAEMIA
     Dosage: 200 MG
     Route: 048
  3. CALCIUM [Suspect]
     Active Substance: CALCIUM
     Indication: HYPOCALCAEMIA
     Dosage: 145 MG
     Route: 048

REACTIONS (2)
  - Calciphylaxis [Recovered/Resolved]
  - Gastrointestinal haemorrhage [Unknown]
